FAERS Safety Report 6216730-5 (Version None)
Quarter: 2009Q2

REPORT INFORMATION
  Report Type: 
  Country: None (occurrence: None)
  Receive Date: 20090605
  Receipt Date: 20090526
  Transmission Date: 20091009
  Serious: Yes (Other)
  Sender: FDA-Public Use
  Company Number: PHHY2009JP21286

PATIENT
  Sex: Male

DRUGS (1)
  1. LOPRESOR [Suspect]
     Indication: ANGINA PECTORIS
     Dosage: 60 MG DAILY
     Route: 048

REACTIONS (1)
  - AMNESIA [None]
